FAERS Safety Report 7934892-6 (Version None)
Quarter: 2011Q4

REPORT INFORMATION
  Report Type: 
  Country: None (occurrence: None)
  Receive Date: 20111122
  Receipt Date: 20111115
  Transmission Date: 20120403
  Serious: Yes (Hospitalization)
  Sender: FDA-Public Use
  Company Number: GB-TEVA-309567ISR

PATIENT
  Age: 46 Year
  Sex: Male
  Weight: 63 kg

DRUGS (3)
  1. ALBUTEROL SULFATE AUTOHALER [Concomitant]
  2. MESALAMINE [Suspect]
     Dosage: 3.6 G/DAY DECREASED TO 2.4 G/DAY WEEK BEFORE ADMISSION
     Dates: start: 20070101, end: 20111101
  3. FLUTICASONE PROPIONATE/SALMETEROL [Concomitant]

REACTIONS (3)
  - EOSINOPHILIA [None]
  - ALLERGIC GRANULOMATOUS ANGIITIS [None]
  - CHEST PAIN [None]
